FAERS Safety Report 10170939 (Version 1)
Quarter: 2014Q2

REPORT INFORMATION
  Report Type: Spontaneous
  Country: US (occurrence: None)
  Receive Date: 20140424
  Receipt Date: 20140424
  Transmission Date: 20141212
  Serious: Yes (Death)
  Sender: FDA-Public Use
  Company Number: 2014-00591

PATIENT
  Age: 53 Year
  Sex: Female

DRUGS (4)
  1. QUETIAPINE [Suspect]
     Indication: PRODUCT USED FOR UNKNOWN INDICATION
     Dosage: UNKNOWN (UNKNOWN, UNKNOWN) , ORAL  UNKNOWN-UNKNOWN THERAPY DATES
     Route: 048
  2. CITALOPRAM (UNKNOWN) (CITALOPRAM) [Suspect]
     Indication: PRODUCT USED FOR UNKNOWN INDICATION
     Dosage: UNKNOWN (UNKNOWN, UNKNOWN), ORAL AND UNKNOWN TO UNKNOWN THERAPY DATES
     Route: 048
  3. METHADONE (UNKNOWN) [Suspect]
     Indication: PRODUCT USED FOR UNKNOWN INDICATION
     Dosage: UNKNOWN (UNKNOWN, UNKNOWN) UNKNOWN, ORAL UNKNOWN-UNKNOWN THERAPY DATE
     Route: 048
  4. DIPHENHYDRAMINE (UNKNOWN) [Suspect]
     Indication: PRODUCT USED FOR UNKNOWN INDICATION
     Dosage: UNKNOWN (UNKNOWN, UNKNOWN), ORAL UNKNOWN-UNKNOWN THERAPY DATES
     Route: 048

REACTIONS (1)
  - Drug abuse [None]
